FAERS Safety Report 9640396 (Version 1)
Quarter: 2013Q4

REPORT INFORMATION
  Report Type: Report from Study
  Country: US (occurrence: US)
  Receive Date: 20131023
  Receipt Date: 20131023
  Transmission Date: 20140711
  Serious: Yes (Other)
  Sender: FDA-Public Use
  Company Number: US-ROCHE-1291703

PATIENT
  Sex: Female

DRUGS (9)
  1. XOLAIR [Suspect]
     Indication: ASTHMA
     Route: 065
  2. ALBUTEROL SULFATE [Concomitant]
     Dosage: 0.63 MG/3ML, EVERY 4-6 HOURS AS NEEDED
     Route: 065
  3. DULERA [Concomitant]
     Dosage: 200MCG-5MCG/ACTUATION
     Route: 055
  4. DYMISTA [Concomitant]
     Dosage: 137 MG-50 MCG/PER SPRAY
     Route: 045
  5. EPIPEN [Concomitant]
     Indication: ANAPHYLACTIC REACTION
     Dosage: 0.3 MG/0.3ML
     Route: 030
  6. OMEPRAZOLE [Concomitant]
     Dosage: BEFORE MEAL
     Route: 048
  7. PREDNISONE [Concomitant]
     Route: 048
  8. PROAIR (UNITED STATES) [Concomitant]
     Dosage: 90 MCG , EVERY 4-6 HOURS PRN
     Route: 048
  9. ZYRTEC [Concomitant]
     Dosage: AS DIRECTED
     Route: 065

REACTIONS (8)
  - Asthma [Unknown]
  - Ear discomfort [Unknown]
  - Sinusitis [Unknown]
  - Nasal congestion [Unknown]
  - Upper-airway cough syndrome [Unknown]
  - Cough [Unknown]
  - Dyspnoea [Unknown]
  - Wheezing [Unknown]
